FAERS Safety Report 7241367-9 (Version None)
Quarter: 2011Q1

REPORT INFORMATION
  Report Type: 
  Country: None (occurrence: None)
  Receive Date: 20110120
  Receipt Date: 20110120
  Transmission Date: 20110831
  Serious: Yes (Other)
  Sender: FDA-Public Use
  Company Number: None

PATIENT
  Sex: Female

DRUGS (1)
  1. OXYBUTYNIN CHLORIDE ER [Suspect]

REACTIONS (2)
  - OROPHARYNGEAL PAIN [None]
  - GLOSSODYNIA [None]
